FAERS Safety Report 14234522 (Version 1)
Quarter: 2017Q4

REPORT INFORMATION
  Report Type: Spontaneous
  Country: DE (occurrence: DE)
  Receive Date: 20171129
  Receipt Date: 20171129
  Transmission Date: 20180321
  Serious: Yes (Congenital Anomaly)
  Sender: FDA-Public Use
  Company Number: DE-SUN PHARMACEUTICAL INDUSTRIES LTD-2017RR-155357

PATIENT
  Sex: Male
  Weight: 4.5 kg

DRUGS (3)
  1. CLEXANE [Concomitant]
     Active Substance: ENOXAPARIN SODIUM
     Indication: THROMBOSIS PROPHYLAXIS
     Dosage: 100 MG/D, BID, 2X100, 0-40.3 GESTATIONAL WEEK
     Route: 064
     Dates: start: 20160731, end: 20170510
  2. FOLSAURE [Concomitant]
     Active Substance: FOLIC ACID
     Indication: PROPHYLAXIS OF NEURAL TUBE DEFECT
     Dosage: UNKNOWN TRIMESTER
     Route: 064
  3. LEVETIRACETAM. [Suspect]
     Active Substance: LEVETIRACETAM
     Indication: EPILEPSY
     Dosage: 2500 MG/D, 0-40.3 GESTATIONAL WEEK, 1000-500-1000
     Route: 064
     Dates: start: 20160731, end: 20170510

REACTIONS (1)
  - Ventricular septal defect [Not Recovered/Not Resolved]
